FAERS Safety Report 13474561 (Version 1)
Quarter: 2017Q2

REPORT INFORMATION
  Report Type: Spontaneous
  Country: US (occurrence: US)
  Receive Date: 20170424
  Receipt Date: 20170424
  Transmission Date: 20170830
  Serious: No
  Sender: FDA-Public Use
  Company Number: US-SHIRE-US201709169

PATIENT
  Age: 8 Year
  Sex: Male
  Weight: 21.32 kg

DRUGS (2)
  1. VYVANSE [Suspect]
     Active Substance: LISDEXAMFETAMINE DIMESYLATE
     Indication: ATTENTION DEFICIT/HYPERACTIVITY DISORDER
     Dosage: 20 MG, 1X/DAY:QD
     Route: 048
  2. QUILLIVANT XR [Suspect]
     Active Substance: METHYLPHENIDATE HYDROCHLORIDE
     Indication: ATTENTION DEFICIT/HYPERACTIVITY DISORDER
     Dosage: 25MG/5ML 1X/DAY:QD (EVERY MORNING)
     Route: 048
     Dates: start: 201609

REACTIONS (3)
  - Excessive eye blinking [Unknown]
  - Visual impairment [Unknown]
  - Weight increased [Unknown]

NARRATIVE: CASE EVENT DATE: 20170327
